FAERS Safety Report 25427433 (Version 1)
Quarter: 2025Q2

REPORT INFORMATION
  Report Type: Spontaneous
  Country: CA (occurrence: CA)
  Receive Date: 20250612
  Receipt Date: 20250612
  Transmission Date: 20250716
  Serious: Yes (Other)
  Sender: CELLTRION
  Company Number: CA-CELLTRION INC.-2025CA017328

PATIENT

DRUGS (1)
  1. STEQEYMA [Suspect]
     Active Substance: USTEKINUMAB-STBA
     Indication: Psoriasis
     Dosage: 90 MG Q12W
     Route: 058
     Dates: start: 20241220

REACTIONS (2)
  - Rectal haemorrhage [Not Recovered/Not Resolved]
  - Drug ineffective [Unknown]

NARRATIVE: CASE EVENT DATE: 20250530
